FAERS Safety Report 20310388 (Version 1)
Quarter: 2022Q1

REPORT INFORMATION
  Report Type: Spontaneous
  Country: US (occurrence: US)
  Receive Date: 20220107
  Receipt Date: 20220107
  Transmission Date: 20220423
  Serious: No
  Sender: FDA-Public Use
  Company Number: US-PFIZER INC-202101361069

PATIENT
  Age: 62 Year
  Sex: Female
  Weight: 84.82 kg

DRUGS (1)
  1. XELJANZ XR [Suspect]
     Active Substance: TOFACITINIB CITRATE
     Indication: Rheumatoid arthritis
     Dosage: 11 MG, 1X/DAY
     Dates: start: 2017

REACTIONS (4)
  - Cardiac disorder [Unknown]
  - Arteriosclerosis [Unknown]
  - Movement disorder [Unknown]
  - Pain [Unknown]
